FAERS Safety Report 15141562 (Version 1)
Quarter: 2018Q3

REPORT INFORMATION
  Report Type: Spontaneous
  Country: US (occurrence: US)
  Receive Date: 20180618
  Receipt Date: 20180618
  Transmission Date: 20181010
  Serious: Yes (Death)
  Sender: FDA-Public Use
  Company Number: None

PATIENT
  Age: 55 Year
  Sex: Female

DRUGS (9)
  1. FOLIC ACID. [Concomitant]
     Active Substance: FOLIC ACID
  2. LOVENOX [Concomitant]
     Active Substance: ENOXAPARIN SODIUM
  3. FLUROCORT [Concomitant]
  4. XARELTO [Concomitant]
     Active Substance: RIVAROXABAN
  5. CITALOPRAM [Concomitant]
     Active Substance: CITALOPRAM HYDROBROMIDE
  6. LINZESS [Concomitant]
     Active Substance: LINACLOTIDE
  7. TACROLIMUS. [Suspect]
     Active Substance: TACROLIMUS
     Indication: LIVER TRANSPLANT
     Route: 048
     Dates: start: 20170404, end: 20180611
  8. ACYCLOVIR. [Concomitant]
     Active Substance: ACYCLOVIR
  9. PREDNISONE. [Concomitant]
     Active Substance: PREDNISONE

REACTIONS (1)
  - Death [None]

NARRATIVE: CASE EVENT DATE: 20180611
